FAERS Safety Report 24877734 (Version 1)
Quarter: 2025Q1

REPORT INFORMATION
  Report Type: Spontaneous
  Country: PT (occurrence: PT)
  Receive Date: 20250123
  Receipt Date: 20250123
  Transmission Date: 20250409
  Serious: Yes (Other)
  Sender: ACCORD
  Company Number: None

PATIENT
  Age: 74 Year
  Sex: Male
  Weight: 74 kg

DRUGS (6)
  1. IRINOTECAN [Suspect]
     Active Substance: IRINOTECAN
     Indication: Pancreatic neoplasm
     Dates: start: 20241204, end: 20241204
  2. ACETAMINOPHEN [Concomitant]
     Active Substance: ACETAMINOPHEN
  3. ONDANSETRON [Concomitant]
     Active Substance: ONDANSETRON
  4. OXALIPLATIN [Concomitant]
     Active Substance: OXALIPLATIN
  5. CLEMASTINE FUMARATE [Concomitant]
     Active Substance: CLEMASTINE FUMARATE
  6. FLUOROURACIL [Concomitant]
     Active Substance: FLUOROURACIL

REACTIONS (6)
  - Headache [Recovered/Resolved]
  - Feeling hot [Recovered/Resolved]
  - Abdominal discomfort [Recovered/Resolved]
  - Nausea [Recovered/Resolved]
  - Vomiting projectile [Recovered/Resolved]
  - Dysgeusia [Recovered/Resolved]

NARRATIVE: CASE EVENT DATE: 20241204
